FAERS Safety Report 5088594-7 (Version None)
Quarter: 2006Q3

REPORT INFORMATION
  Report Type: 
  Country: None (occurrence: None)
  Receive Date: 20060731
  Receipt Date: 20051130
  Transmission Date: 20061208
  Serious: Yes (Other)
  Sender: FDA-Public Use
  Company Number: US200512000131

PATIENT
  Age: 77 Year
  Sex: Female

DRUGS (8)
  1. FORTEO [Suspect]
     Indication: OSTEOPOROSIS
     Dates: start: 20051123, end: 20051128
  2. FORTEO PEN, DISPOSABLE [Concomitant]
  3. CARBIDOPA AND LEVODOPA [Concomitant]
  4. CARBIDOPA [Concomitant]
  5. FLUDROCORTISONE [Concomitant]
  6. STALEVO/USA/(CARBIDOPA, ENTACAPONE, LEVODOPA) [Concomitant]
  7. SELEGAM (SELEGLINE HYDROCHLORIDE) [Concomitant]
  8. REQUIP [Concomitant]

REACTIONS (3)
  - ASTHENIA [None]
  - BLOOD PRESSURE INCREASED [None]
  - LETHARGY [None]
